FAERS Safety Report 24107011 (Version 1)
Quarter: 2024Q3

REPORT INFORMATION
  Report Type: Report from Study
  Country: GB (occurrence: GB)
  Receive Date: 20240717
  Receipt Date: 20240717
  Transmission Date: 20241017
  Serious: Yes (Hospitalization, Other)
  Sender: NOVARTIS
  Company Number: GB-002147023-NVSC2023GB009789

PATIENT
  Sex: Male

DRUGS (1)
  1. COSENTYX [Suspect]
     Active Substance: SECUKINUMAB
     Indication: Psoriatic arthropathy
     Dosage: 300 MG, QMO
     Route: 058
     Dates: start: 20220101

REACTIONS (6)
  - Skin infection [Unknown]
  - Psoriatic arthropathy [Unknown]
  - Paraesthesia [Unknown]
  - Pain [Unknown]
  - Product use issue [Unknown]
  - Movement disorder [Unknown]
